FAERS Safety Report 9175524 (Version 1)
Quarter: 2012Q4

REPORT INFORMATION
  Report Type: 
  Country: US (occurrence: US)
  Receive Date: 20120910
  Receipt Date: 20120910
  Transmission Date: 20130627
  Serious: Yes (Disabling, Other)
  Sender: FDA-Public Use
  Company Number: US-CTI_01478_2012

PATIENT
  Sex: Female

DRUGS (1)
  1. ZYFLO CR [Suspect]
     Indication: PRODUCT USED FOR UNKNOWN INDICATION
     Dosage: DF
     Dates: start: 2012

REACTIONS (3)
  - Activities of daily living impaired [Unknown]
  - Headache [Unknown]
  - Migraine [Unknown]
